FAERS Safety Report 15907407 (Version 2)
Quarter: 2019Q1

REPORT INFORMATION
  Report Type: Report from Study
  Country: US (occurrence: US)
  Receive Date: 20190204
  Receipt Date: 20190214
  Transmission Date: 20190417
  Serious: Yes (Hospitalization)
  Sender: FDA-Public Use
  Company Number: US-EXELIXIS-CABO-19018503

PATIENT
  Sex: Male

DRUGS (1)
  1. CABOMETYX [Suspect]
     Active Substance: CABOZANTINIB S-MALATE
     Indication: RENAL CANCER
     Dosage: 60 MG, QD (AM W/O FOOD)
     Dates: start: 201811, end: 20190206

REACTIONS (9)
  - Oropharyngeal pain [Unknown]
  - Gingival pain [Unknown]
  - Dysphagia [Unknown]
  - Dry skin [Unknown]
  - Joint swelling [Unknown]
  - Kidney infection [Unknown]
  - Skin exfoliation [Unknown]
  - Blood pressure increased [Unknown]
  - Pain in extremity [Unknown]
